FAERS Safety Report 17744249 (Version 1)
Quarter: 2020Q2

REPORT INFORMATION
  Report Type: Spontaneous
  Country: US (occurrence: US)
  Receive Date: 20200504
  Receipt Date: 20200504
  Transmission Date: 20200714
  Serious: No
  Sender: FDA-Public Use
  Company Number: US-AMGEN-USASP2020070849

PATIENT
  Sex: Female

DRUGS (4)
  1. CLARITINE [Concomitant]
     Active Substance: LORATADINE
     Route: 065
  2. ALEVE [Concomitant]
     Active Substance: NAPROXEN SODIUM
     Route: 065
  3. ICY HOT ADVANCED RELIEF [CAMPHOR;MENTHOL] [Concomitant]
     Route: 065
  4. NEULASTA [Suspect]
     Active Substance: PEGFILGRASTIM
     Indication: BREAST CANCER
     Dosage: UNK
     Route: 065

REACTIONS (5)
  - Diarrhoea [Unknown]
  - Muscle spasms [Unknown]
  - Headache [Unknown]
  - Fatigue [Unknown]
  - Bone pain [Unknown]
